FAERS Safety Report 5805223-2 (Version None)
Quarter: 2008Q3

REPORT INFORMATION
  Report Type: 
  Country: None (occurrence: None)
  Receive Date: 20080707
  Receipt Date: 20080624
  Transmission Date: 20090109
  Serious: Yes (Other)
  Sender: FDA-Public Use
  Company Number: 2008AL005374

PATIENT
  Sex: Male

DRUGS (1)
  1. DIGOXIN [Suspect]
     Dates: start: 20070801, end: 20080401

REACTIONS (3)
  - ADVERSE DRUG REACTION [None]
  - MULTIPLE INJURIES [None]
  - OVERDOSE [None]
